FAERS Safety Report 10962632 (Version 3)
Quarter: 2015Q3

REPORT INFORMATION
  Report Type: Spontaneous
  Country: US (occurrence: US)
  Receive Date: 20150327
  Receipt Date: 20150914
  Transmission Date: 20151125
  Serious: Yes (Hospitalization)
  Sender: FDA-Public Use
  Company Number: US-PURDUE-USA-2015-0121862

PATIENT
  Age: 28 Year
  Sex: Female
  Weight: 50 kg

DRUGS (7)
  1. ZOFRAN [Suspect]
     Active Substance: ONDANSETRON HYDROCHLORIDE
     Indication: ABDOMINAL PAIN
     Dosage: 4 MG, ONCE
     Route: 042
     Dates: start: 20150126, end: 20150127
  2. PLACEBO [Suspect]
     Active Substance: UNSPECIFIED INGREDIENT
     Indication: GENERALISED ANXIETY DISORDER
     Dosage: BLINDED
     Route: 065
     Dates: start: 20150129, end: 20150202
  3. OLEPTRO [Concomitant]
     Active Substance: TRAZODONE HYDROCHLORIDE
     Indication: SLEEP DISORDER
     Dosage: 50 MG, PRN
     Route: 048
     Dates: start: 201410
  4. DILAUDID [Suspect]
     Active Substance: HYDROMORPHONE HYDROCHLORIDE
     Indication: ABDOMINAL PAIN
     Dosage: 1 MG, ONCE
     Route: 042
     Dates: start: 20150126, end: 20150127
  5. TORADOL [Suspect]
     Active Substance: KETOROLAC TROMETHAMINE
     Indication: ABDOMINAL PAIN
     Dosage: 30 MG, ONCE
     Route: 042
     Dates: start: 20150126, end: 20150127
  6. NORCO [Suspect]
     Active Substance: ACETAMINOPHEN\HYDROCODONE BITARTRATE
     Indication: ABDOMINAL PAIN
     Dosage: 7.5-325 MG PRN
     Route: 048
     Dates: start: 20150127, end: 20150128
  7. EFFEXOR [Concomitant]
     Active Substance: VENLAFAXINE HYDROCHLORIDE
     Indication: GENERALISED ANXIETY DISORDER
     Dosage: 75 MG, DAILY
     Route: 048
     Dates: start: 201410

REACTIONS (2)
  - Vertigo positional [Recovering/Resolving]
  - Dizziness [Recovering/Resolving]

NARRATIVE: CASE EVENT DATE: 20150204
